FAERS Safety Report 9507381 (Version 1)
Quarter: 2013Q3

REPORT INFORMATION
  Report Type: Report from Study
  Country: JP (occurrence: JP)
  Receive Date: 20130909
  Receipt Date: 20130909
  Transmission Date: 20140515
  Serious: Yes (Life-Threatening, Hospitalization)
  Sender: FDA-Public Use
  Company Number: JP-GENZYME-THYM-1004103

PATIENT
  Age: 77 Year
  Sex: Female
  Weight: 33 kg

DRUGS (14)
  1. THYMOGLOBULIN [Suspect]
     Indication: APLASTIC ANAEMIA
     Dosage: 115.5 MG, QD
     Route: 065
     Dates: start: 20120228, end: 20120303
  2. DENOSINE [Suspect]
     Indication: EPSTEIN-BARR VIRUS INFECTION
     Dosage: UNK
     Route: 065
     Dates: start: 20120324, end: 20120409
  3. DENOSINE [Suspect]
     Indication: CYTOMEGALOVIRUS VIRAEMIA
     Dosage: UNK
     Route: 065
     Dates: start: 20120511, end: 20120817
  4. SOL-MELCORT [Concomitant]
     Indication: PROPHYLAXIS
     Dosage: 65 MG, UNK
     Route: 065
     Dates: start: 20120128, end: 20120305
  5. MEDROL [Concomitant]
     Indication: PROPHYLAXIS
     Dosage: 32 MG, UNK
     Route: 065
     Dates: start: 20120306, end: 20120312
  6. MEDROL [Concomitant]
     Dosage: 16 MG, UNK
     Route: 065
     Dates: start: 20120313, end: 20120319
  7. MEDROL [Concomitant]
     Dosage: 8 MG, UNK
     Route: 065
     Dates: start: 20120320, end: 20120326
  8. MEDROL [Concomitant]
     Dosage: 4 MG, UNK
     Route: 065
     Dates: start: 20120327, end: 20120402
  9. OMEPRAL [Concomitant]
     Indication: PROPHYLAXIS
     Dosage: UNK
     Route: 065
     Dates: start: 20120228
  10. DIFLUCAN [Concomitant]
     Indication: PROPHYLAXIS
     Dosage: UNK
     Route: 065
     Dates: start: 20120228
  11. AMLODIPINE [Concomitant]
     Indication: HYPERTENSION
     Dosage: UNK
     Route: 065
  12. MYSLEE [Concomitant]
     Indication: INSOMNIA
     Dosage: UNK
     Route: 065
  13. ZOVIRAX [Concomitant]
     Indication: PROPHYLAXIS
     Dosage: UNK
     Route: 065
     Dates: start: 20120306
  14. BAKTAR [Concomitant]
     Indication: PROPHYLAXIS
     Dosage: UNK
     Route: 065
     Dates: start: 20120316

REACTIONS (6)
  - Febrile neutropenia [Not Recovered/Not Resolved]
  - Neutropenia [Recovered/Resolved]
  - Epstein-Barr virus infection [Not Recovered/Not Resolved]
  - Cytomegalovirus viraemia [Not Recovered/Not Resolved]
  - Staphylococcal sepsis [Not Recovered/Not Resolved]
  - Hypokalaemia [Not Recovered/Not Resolved]
